FAERS Safety Report 20681905 (Version 2)
Quarter: 2022Q2

REPORT INFORMATION
  Report Type: Spontaneous
  Country: LB (occurrence: LB)
  Receive Date: 20220407
  Receipt Date: 20220429
  Transmission Date: 20220721
  Serious: Yes (Other)
  Sender: FDA-Public Use
  Company Number: LB-SUN PHARMACEUTICAL INDUSTRIES LTD-2022RR-330897

PATIENT
  Age: 68 Year
  Sex: Female

DRUGS (2)
  1. DOXORUBICIN [Suspect]
     Active Substance: DOXORUBICIN
     Indication: Breast cancer
     Dosage: UNK
     Route: 065
  2. SINTROM [Suspect]
     Active Substance: ACENOCOUMAROL
     Indication: Atrial fibrillation
     Dosage: UNK
     Route: 065

REACTIONS (3)
  - Fatigue [Unknown]
  - Epistaxis [Unknown]
  - Thrombocytopenia [Recovered/Resolved]
